FAERS Safety Report 9889635 (Version 1)
Quarter: 2014Q1

REPORT INFORMATION
  Report Type: Spontaneous
  Country: IT (occurrence: IT)
  Receive Date: 20140211
  Receipt Date: 20140211
  Transmission Date: 20141002
  Serious: Yes (Other)
  Sender: FDA-Public Use
  Company Number: IT-MYLANLABS-2014S1002237

PATIENT
  Age: 81 Year
  Sex: Female

DRUGS (6)
  1. LANSOPRAZOLE [Suspect]
     Indication: GASTROOESOPHAGEAL REFLUX DISEASE
     Route: 048
     Dates: start: 20131001, end: 20131224
  2. LANSOPRAZOLE [Suspect]
     Indication: GASTRITIS
     Route: 048
     Dates: start: 20131001, end: 20131224
  3. CO-AMOXICLAV [Suspect]
     Indication: PHARYNGITIS
     Route: 048
     Dates: end: 20131224
  4. EPINITRIL [Concomitant]
     Indication: PRODUCT USED FOR UNKNOWN INDICATION
     Route: 062
  5. TENORETIC [Concomitant]
     Indication: PRODUCT USED FOR UNKNOWN INDICATION
     Route: 048
  6. CARDIOASPIRIN [Concomitant]
     Indication: PRODUCT USED FOR UNKNOWN INDICATION
     Route: 048

REACTIONS (5)
  - Chest pain [Recovering/Resolving]
  - Diarrhoea [Recovering/Resolving]
  - Gastritis [Recovering/Resolving]
  - Nausea [Recovering/Resolving]
  - Proctitis [Recovering/Resolving]
